FAERS Safety Report 23092644 (Version 1)
Quarter: 2023Q4

REPORT INFORMATION
  Report Type: Spontaneous
  Country: US (occurrence: US)
  Receive Date: 20231021
  Receipt Date: 20231021
  Transmission Date: 20240109
  Serious: No
  Sender: FDA-Public Use
  Company Number: US-DAIICHI SANKYO, INC.-DSU-2023-143101AA

PATIENT
  Sex: Female

DRUGS (2)
  1. ENHERTU [Suspect]
     Active Substance: FAM-TRASTUZUMAB DERUXTECAN-NXKI
     Indication: Breast cancer metastatic
     Dosage: 490 MG, ONCE EVERY 3 WK
     Route: 042
     Dates: start: 20230123
  2. ENHERTU [Suspect]
     Active Substance: FAM-TRASTUZUMAB DERUXTECAN-NXKI
     Dosage: 390 MG, ONCE EVERY 3 WK
     Route: 042
     Dates: start: 2023

REACTIONS (2)
  - Disease progression [Unknown]
  - Therapy change [Unknown]

NARRATIVE: CASE EVENT DATE: 20230101
